FAERS Safety Report 4846252-5 (Version None)
Quarter: 2005Q4

REPORT INFORMATION
  Report Type: 
  Country: None (occurrence: None)
  Receive Date: 20051115
  Receipt Date: 20050825
  Transmission Date: 20060501
  Serious: Yes (Other)
  Sender: FDA-Public Use
  Company Number: 415717

PATIENT
  Age: 47 Year
  Sex: Male

DRUGS (3)
  1. PEGASYS [Suspect]
     Indication: HEPATITIS C VIRUS
     Dosage: 180 MCG 1 PER WEEK SUBCUTANEOUS
     Route: 058
     Dates: start: 20050115
  2. COPEGUS [Suspect]
     Indication: HEPATITIS C VIRUS
     Dosage: 1000 MG DAILY ORAL
     Route: 048
     Dates: start: 20050115
  3. ZOLOFT [Concomitant]

REACTIONS (8)
  - ARTHRALGIA [None]
  - BACK PAIN [None]
  - JOINT STIFFNESS [None]
  - MUSCULOSKELETAL PAIN [None]
  - PAIN [None]
  - RHEUMATOID ARTHRITIS [None]
  - SHOULDER PAIN [None]
  - WHITE BLOOD CELL COUNT DECREASED [None]
